FAERS Safety Report 13620237 (Version 1)
Quarter: 2017Q2

REPORT INFORMATION
  Report Type: Report from Study
  Country: US (occurrence: US)
  Receive Date: 20170607
  Receipt Date: 20170607
  Transmission Date: 20170830
  Serious: No
  Sender: FDA-Public Use
  Company Number: US-AMGEN-USASL2017084813

PATIENT
  Age: 57 Year
  Sex: Female

DRUGS (2)
  1. ENBREL [Suspect]
     Active Substance: ETANERCEPT
     Indication: RHEUMATOID ARTHRITIS
     Dosage: 50 MG, QWK
     Route: 065
     Dates: start: 2009
  2. METHOTREXATE. [Concomitant]
     Active Substance: METHOTREXATE
     Dosage: UNK, ON MONDAYS

REACTIONS (7)
  - Fatigue [Unknown]
  - Abdominal pain [Not Recovered/Not Resolved]
  - Musculoskeletal pain [Unknown]
  - Diverticulum [Unknown]
  - Pelvic congestion [Unknown]
  - Drug dose omission [Unknown]
  - Pollakiuria [Unknown]

NARRATIVE: CASE EVENT DATE: 2017
